FAERS Safety Report 5947612-1 (Version None)
Quarter: 2008Q4

REPORT INFORMATION
  Report Type: 
  Country: None (occurrence: None)
  Receive Date: 20081107
  Receipt Date: 20081028
  Transmission Date: 20090506
  Serious: Yes (Life-Threatening, Hospitalization)
  Sender: FDA-Public Use
  Company Number: 20085741

PATIENT
  Sex: Female

DRUGS (1)
  1. LIORESAL [Suspect]
     Indication: MUSCLE SPASTICITY
     Dosage: UNK     MCG, DAILY, INTRATHECAL
     Route: 037

REACTIONS (3)
  - CHOLECYSTECTOMY [None]
  - POST PROCEDURAL INFECTION [None]
  - SEPSIS [None]
